FAERS Safety Report 21591526 (Version 2)
Quarter: 2022Q4

REPORT INFORMATION
  Report Type: Spontaneous
  Country: JP (occurrence: JP)
  Receive Date: 20221114
  Receipt Date: 20221121
  Transmission Date: 20230113
  Serious: Yes (Hospitalization, Other)
  Sender: FDA-Public Use
  Company Number: JP-PFIZER INC-PV202200099148

PATIENT
  Age: 89 Year
  Sex: Female

DRUGS (2)
  1. BINIMETINIB [Suspect]
     Active Substance: BINIMETINIB
     Indication: Colon cancer metastatic
     Dosage: 300 MG, DAILY
  2. ENCORAFENIB [Suspect]
     Active Substance: ENCORAFENIB
     Indication: Colon cancer
     Route: 048

REACTIONS (5)
  - Serous retinal detachment [Recovered/Resolved]
  - Cystoid macular oedema [Recovered/Resolved]
  - Gastrointestinal disorder [Unknown]
  - Off label use [Unknown]
  - Prescribed overdose [Unknown]
